FAERS Safety Report 9750095 (Version 2)
Quarter: 2015Q3

REPORT INFORMATION
  Report Type: Spontaneous
  Country: US (occurrence: US)
  Receive Date: 20131212
  Receipt Date: 20150730
  Transmission Date: 20151125
  Serious: No
  Sender: FDA-Public Use
  Company Number: US-GILEAD-US-CVT-090825

PATIENT
  Sex: Male

DRUGS (14)
  1. CLONIDINE. [Concomitant]
     Active Substance: CLONIDINE
  2. GLIMEPIRIDE. [Concomitant]
     Active Substance: GLIMEPIRIDE
  3. METFORMIN                          /00082701/ [Concomitant]
  4. ATENOLOL. [Concomitant]
     Active Substance: ATENOLOL
  5. IMDUR [Concomitant]
     Active Substance: ISOSORBIDE MONONITRATE
  6. FISH OIL [Concomitant]
     Active Substance: FISH OIL
  7. RANEXA [Suspect]
     Active Substance: RANOLAZINE
     Indication: ANGINA PECTORIS
  8. MINITRAN [Concomitant]
     Active Substance: NITROGLYCERIN
  9. AMLODIPINE [Concomitant]
     Active Substance: AMLODIPINE BESYLATE
  10. ENALAPRIL /00574901/ [Concomitant]
  11. LOVASTATIN. [Concomitant]
     Active Substance: LOVASTATIN
  12. KCL [Concomitant]
     Active Substance: POTASSIUM CHLORIDE
  13. NITROSTAT [Concomitant]
     Active Substance: NITROGLYCERIN
  14. FEXOFENADINE [Concomitant]
     Active Substance: FEXOFENADINE\FEXOFENADINE HYDROCHLORIDE

REACTIONS (1)
  - Dysgeusia [Unknown]
